FAERS Safety Report 12551373 (Version 1)
Quarter: 2016Q3

REPORT INFORMATION
  Report Type: Spontaneous
  Country: US (occurrence: US)
  Receive Date: 20160713
  Receipt Date: 20160713
  Transmission Date: 20161109
  Serious: No
  Sender: FDA-Public Use
  Company Number: US-TEVA-656807USA

PATIENT
  Sex: Female

DRUGS (2)
  1. ZECUITY [Suspect]
     Active Substance: SUMATRIPTAN SUCCINATE
     Route: 062
  2. MIRENA [Interacting]
     Active Substance: LEVONORGESTREL
     Route: 065

REACTIONS (3)
  - Drug interaction [Unknown]
  - Application site irritation [Unknown]
  - Nausea [Unknown]
